FAERS Safety Report 4409870-4 (Version None)
Quarter: 2004Q3

REPORT INFORMATION
  Report Type: 
  Country: None (occurrence: None)
  Receive Date: 20040727
  Receipt Date: 20040714
  Transmission Date: 20050211
  Serious: Yes (Other)
  Sender: FDA-Public Use
  Company Number: 8468

PATIENT
  Age: 12 Month
  Sex: Male
  Weight: 6.3 kg

DRUGS (1)
  1. PAMIDRONATE DISODIUM [Suspect]
     Indication: OSTEOGENESIS IMPERFECTA
     Dosage: 0.25 MG/KG DAILY; IV
     Route: 042

REACTIONS (4)
  - BRADYCARDIA [None]
  - PCO2 INCREASED [None]
  - PYREXIA [None]
  - RESPIRATORY RATE DECREASED [None]
